FAERS Safety Report 9002659 (Version 7)
Quarter: 2019Q2

REPORT INFORMATION
  Report Type: Spontaneous
  Country: US (occurrence: US)
  Receive Date: 20130107
  Receipt Date: 20190620
  Transmission Date: 20190711
  Serious: Yes (Disabling, Other)
  Sender: FDA-Public Use
  Company Number: US-PFIZER INC-2013003625

PATIENT
  Age: 52 Year
  Sex: Male
  Weight: 75 kg

DRUGS (6)
  1. HYDROCODONE [Concomitant]
     Active Substance: HYDROCODONE
     Indication: ANKYLOSING SPONDYLITIS
     Dosage: UNK
  2. DIAZEPAM. [Concomitant]
     Active Substance: DIAZEPAM
     Indication: ANXIETY
     Dosage: UNK
  3. GABAPENTIN. [Concomitant]
     Active Substance: GABAPENTIN
     Indication: ANKYLOSING SPONDYLITIS
     Dosage: UNK
  4. CELEBREX [Suspect]
     Active Substance: CELECOXIB
     Indication: PAIN
  5. METHADONE [Concomitant]
     Active Substance: METHADONE HYDROCHLORIDE
     Indication: ARTHRALGIA
     Dosage: UNK
  6. CELEBREX [Suspect]
     Active Substance: CELECOXIB
     Indication: ANKYLOSING SPONDYLITIS
     Dosage: 200 MG, 2X/DAY
     Route: 048
     Dates: start: 19970101

REACTIONS (4)
  - Spinal stenosis [Not Recovered/Not Resolved]
  - Blood cholesterol increased [Unknown]
  - Ankylosing spondylitis [Not Recovered/Not Resolved]
  - Condition aggravated [Not Recovered/Not Resolved]

NARRATIVE: CASE EVENT DATE: 201109
